FAERS Safety Report 4422592-9 (Version None)
Quarter: 2004Q3

REPORT INFORMATION
  Report Type: 
  Country: None (occurrence: None)
  Receive Date: 20040713
  Receipt Date: 20030515
  Transmission Date: 20050211
  Serious: No
  Sender: FDA-Public Use
  Company Number: PHEH2003US04063

PATIENT
  Age: 89 Year
  Sex: Male

DRUGS (12)
  1. ELIDEL [Suspect]
     Indication: DRY SKIN
     Dosage: QD, TOPICAL
     Route: 061
     Dates: start: 20030301
  2. IMDUR [Concomitant]
  3. HYDROCHLOROTHIAZIDE [Concomitant]
  4. ASPIRIN [Concomitant]
  5. ATENOLOL [Concomitant]
  6. NORVASC [Concomitant]
  7. DIOVAN [Concomitant]
  8. CARDURA [Concomitant]
  9. LASIX [Concomitant]
  10. KCL TAB [Concomitant]
  11. INSULIN [Concomitant]
  12. VITAMIN E [Concomitant]

REACTIONS (2)
  - COUGH [None]
  - SPUTUM DISCOLOURED [None]
